FAERS Safety Report 7203468-0 (Version None)
Quarter: 2010Q4

REPORT INFORMATION
  Report Type: 
  Country: None (occurrence: None)
  Receive Date: 20101230
  Receipt Date: 20101221
  Transmission Date: 20110411
  Serious: Yes (Hospitalization, Other)
  Sender: FDA-Public Use
  Company Number: US-JNJFOC-20100707308

PATIENT
  Sex: Male

DRUGS (5)
  1. LEVAQUIN [Suspect]
     Indication: URINARY TRACT INFECTION
     Route: 048
  2. LEVAQUIN [Suspect]
     Indication: FLANK PAIN
     Route: 048
  3. METHYLPREDNISOLONE [Suspect]
     Indication: INFLAMMATION
     Route: 065
  4. CIPROFLOXACIN [Suspect]
     Indication: BENIGN PROSTATIC HYPERPLASIA
     Route: 065
  5. CIPROFLOXACIN [Suspect]
     Indication: URINARY RETENTION
     Route: 065

REACTIONS (2)
  - OSTEOARTHRITIS [None]
  - ROTATOR CUFF SYNDROME [None]
